FAERS Safety Report 9433813 (Version 1)
Quarter: 2013Q3

REPORT INFORMATION
  Report Type: Report from Study
  Country: FR (occurrence: FR)
  Receive Date: 20130731
  Receipt Date: 20130731
  Transmission Date: 20140515
  Serious: Yes (Hospitalization)
  Sender: FDA-Public Use
  Company Number: PHHO2013FR009939

PATIENT
  Age: 70 Year
  Sex: Female

DRUGS (1)
  1. AFINITOR [Suspect]
     Indication: RENAL CANCER METASTATIC
     Dosage: 5 MG, QD
     Route: 048
     Dates: start: 20130402, end: 20130725

REACTIONS (2)
  - General physical health deterioration [Not Recovered/Not Resolved]
  - Hyperthermia [Not Recovered/Not Resolved]
